FAERS Safety Report 12522358 (Version 1)
Quarter: 2016Q3

REPORT INFORMATION
  Report Type: Spontaneous
  Country: US (occurrence: US)
  Receive Date: 20160701
  Receipt Date: 20160701
  Transmission Date: 20161109
  Serious: Yes (Other)
  Sender: FDA-Public Use
  Company Number: PHEH2016US015985

PATIENT
  Sex: Female
  Weight: 74.38 kg

DRUGS (7)
  1. LATUDA [Suspect]
     Active Substance: LURASIDONE HYDROCHLORIDE
     Indication: BIPOLAR DISORDER
     Dosage: 20 MG, QD
     Route: 048
     Dates: start: 20160105, end: 201601
  2. LATUDA [Suspect]
     Active Substance: LURASIDONE HYDROCHLORIDE
     Dosage: 80 MG, QD
     Route: 048
     Dates: start: 201603
  3. CARBAMAZEPINE. [Suspect]
     Active Substance: CARBAMAZEPINE
     Indication: PRODUCT USED FOR UNKNOWN INDICATION
     Dosage: 400 MG, TID
     Route: 048
  4. LATUDA [Suspect]
     Active Substance: LURASIDONE HYDROCHLORIDE
     Dosage: 60 MG, QD
     Route: 048
     Dates: start: 201602, end: 201603
  5. LITHIUM. [Suspect]
     Active Substance: LITHIUM
     Indication: PRODUCT USED FOR UNKNOWN INDICATION
     Dosage: UNK
     Route: 048
  6. LITHIUM. [Suspect]
     Active Substance: LITHIUM
     Dosage: 900 MG, QD
     Route: 048
     Dates: end: 201603
  7. LATUDA [Suspect]
     Active Substance: LURASIDONE HYDROCHLORIDE
     Dosage: 40 MG, QD
     Route: 048
     Dates: start: 201601, end: 201602

REACTIONS (10)
  - Nausea [Recovered/Resolved]
  - Migraine [Recovered/Resolved]
  - Blood pressure increased [Recovered/Resolved]
  - Dizziness [Recovered/Resolved]
  - Mania [Recovered/Resolved]
  - Drug administration error [Recovered/Resolved]
  - Crying [Recovered/Resolved]
  - Abnormal behaviour [Recovered/Resolved]
  - Hypomania [Recovered/Resolved]
  - Tremor [Recovered/Resolved]
